FAERS Safety Report 10029743 (Version 1)
Quarter: 2014Q1

REPORT INFORMATION
  Report Type: Spontaneous
  Country: US (occurrence: None)
  Receive Date: 20140321
  Receipt Date: 20140321
  Transmission Date: 20141002
  Serious: Yes (Other)
  Sender: FDA-Public Use
  Company Number: None

PATIENT
  Age: 38 Year
  Sex: Female

DRUGS (1)
  1. SAIZEN [Suspect]
     Indication: INFERTILITY
     Dosage: 4 UNITS
     Route: 058
     Dates: start: 20140314, end: 20140316

REACTIONS (3)
  - Headache [None]
  - Nausea [None]
  - Incoherent [None]
